FAERS Safety Report 4514675-X (Version None)
Quarter: 2004Q4

REPORT INFORMATION
  Report Type: 
  Country: None (occurrence: None)
  Receive Date: 20041126
  Receipt Date: 20041115
  Transmission Date: 20050328
  Serious: Yes (Other)
  Sender: FDA-Public Use
  Company Number: GBWYE211718NOV04

PATIENT
  Age: 36 Year
  Sex: Female

DRUGS (2)
  1. EFFEXOR [Suspect]
     Indication: DEPRESSION
     Dosage: 37.5MG ORAL
     Route: 048
     Dates: start: 20041028, end: 20041028
  2. HALF-INDERAL LA (PROPRANOLOL HYDROCHLORIDE) [Concomitant]

REACTIONS (4)
  - APHASIA [None]
  - HEADACHE [None]
  - MOBILITY DECREASED [None]
  - VOMITING [None]
